FAERS Safety Report 19943101 (Version 2)
Quarter: 2021Q4

REPORT INFORMATION
  Report Type: Spontaneous
  Country: FR (occurrence: FR)
  Receive Date: 20211011
  Receipt Date: 20211014
  Transmission Date: 20220303
  Serious: Yes (Disabling)
  Sender: FDA-Public Use
  Company Number: FR-CELGENE-FRA-20211002030

PATIENT
  Age: 43 Year
  Sex: Female
  Weight: 52 kg

DRUGS (1)
  1. THALIDOMIDE [Suspect]
     Active Substance: THALIDOMIDE
     Indication: Plasma cell myeloma
     Route: 048
     Dates: start: 20050228, end: 200704

REACTIONS (1)
  - Pulmonary arterial hypertension [Recovered/Resolved with Sequelae]

NARRATIVE: CASE EVENT DATE: 20081028
